FAERS Safety Report 8594606 (Version 2)
Quarter: 2012Q4

REPORT INFORMATION
  Report Type: 
  Country: US (occurrence: US)
  Receive Date: 20120604
  Receipt Date: 20120906
  Transmission Date: 20130627
  Serious: Yes (Hospitalization)
  Sender: FDA-Public Use
  Company Number: US-GLAXOSMITHKLINE-A0979901A

PATIENT
  Age: 55 Year
  Sex: Female

DRUGS (5)
  1. ADVAIR [Suspect]
     Indication: CHRONIC OBSTRUCTIVE PULMONARY DISEASE
     Dosage: 1PUFF Twice per day
     Route: 055
     Dates: start: 199908
  2. LISINOPRIL [Suspect]
     Indication: HYPERTENSION
  3. PAXIL [Concomitant]
  4. LISINOPRIL [Concomitant]
  5. BUSPIRONE [Concomitant]

REACTIONS (5)
  - Hospitalisation [Unknown]
  - Oral candidiasis [Not Recovered/Not Resolved]
  - Drug administration error [Unknown]
  - Dry throat [Not Recovered/Not Resolved]
  - Throat irritation [Not Recovered/Not Resolved]
